FAERS Safety Report 8525806-9 (Version None)
Quarter: 2012Q3

REPORT INFORMATION
  Report Type: 
  Country: None (occurrence: None)
  Receive Date: 20120720
  Receipt Date: 20120709
  Transmission Date: 20120928
  Serious: Yes (Hospitalization)
  Sender: FDA-Public Use
  Company Number: US-009507513-1207USA004955

PATIENT

DRUGS (9)
  1. LOVENOX [Concomitant]
     Indication: ANTICOAGULANT THERAPY
     Dosage: UNK
     Dates: start: 20100216, end: 20100222
  2. NUVARING [Suspect]
     Indication: DYSMENORRHOEA
  3. NUVARING [Suspect]
     Indication: MENORRHAGIA
  4. GLUCOPHAGE [Concomitant]
     Indication: PRODUCT USED FOR UNKNOWN INDICATION
  5. CONCEPT DHA [Concomitant]
     Indication: PRODUCT USED FOR UNKNOWN INDICATION
     Dosage: 35-1-200 MG
     Dates: start: 20100216
  6. NUVARING [Suspect]
     Indication: CONTRACEPTION
     Dosage: UNK
     Dates: start: 20090811, end: 20090901
  7. NUVARING [Suspect]
     Indication: MENSTRUATION IRREGULAR
  8. HEPARIN [Concomitant]
     Indication: ANTICOAGULANT THERAPY
     Dosage: 10000 IU, Q8H
     Dates: start: 20100222
  9. COUMADIN [Concomitant]
     Indication: ANTICOAGULANT THERAPY
     Dosage: UNK
     Dates: start: 20090914, end: 20100216

REACTIONS (1)
  - FOETAL DEATH [None]
